FAERS Safety Report 19941398 (Version 2)
Quarter: 2021Q4

REPORT INFORMATION
  Report Type: Spontaneous
  Country: PL (occurrence: PL)
  Receive Date: 20211011
  Receipt Date: 20211124
  Transmission Date: 20220303
  Serious: Yes (Hospitalization, Other)
  Sender: FDA-Public Use
  Company Number: PL-SAMSUNG BIOEPIS-SB-2021-14160

PATIENT
  Age: 52 Year
  Sex: Male

DRUGS (12)
  1. ADALIMUMAB [Suspect]
     Active Substance: ADALIMUMAB
     Indication: Psoriasis
     Dosage: UNK
     Route: 065
  2. ADALIMUMAB [Suspect]
     Active Substance: ADALIMUMAB
     Indication: Psoriatic arthropathy
     Dosage: UNK
     Dates: start: 201805
  3. ETHAMBUTOL [Suspect]
     Active Substance: ETHAMBUTOL HYDROCHLORIDE
     Indication: Tuberculosis
     Dosage: UNK
  4. ETHAMBUTOL [Suspect]
     Active Substance: ETHAMBUTOL HYDROCHLORIDE
     Dosage: UNK
     Route: 065
     Dates: end: 201812
  5. LEFLUNOMIDE [Concomitant]
     Active Substance: LEFLUNOMIDE
     Indication: Psoriasis
     Dosage: UNK
     Route: 065
  6. CYCLOSPORINE [Concomitant]
     Active Substance: CYCLOSPORINE
     Indication: Psoriasis
     Dosage: UNK
     Route: 065
  7. METHOTREXATE [Concomitant]
     Active Substance: METHOTREXATE
     Indication: Psoriasis
     Dosage: UNK
     Route: 065
  8. RIFAMPIN [Concomitant]
     Active Substance: RIFAMPIN
     Indication: Prophylactic chemotherapy
     Dosage: UNK
     Route: 065
     Dates: end: 201910
  9. RIFAMPIN [Concomitant]
     Active Substance: RIFAMPIN
     Indication: Tuberculosis
     Dosage: UNK
     Route: 065
     Dates: end: 201812
  10. RIFAMPIN [Concomitant]
     Active Substance: RIFAMPIN
     Dosage: UNK
     Dates: end: 201804
  11. PYRAZINAMIDE [Concomitant]
     Active Substance: PYRAZINAMIDE
     Indication: Tuberculosis
     Dosage: UNK
     Route: 065
     Dates: start: 201804
  12. PYRAZINAMIDE [Concomitant]
     Active Substance: PYRAZINAMIDE
     Dosage: UNK
     Route: 065
     Dates: start: 201812

REACTIONS (9)
  - Tuberculosis [Recovered/Resolved]
  - Cystoid macular oedema [Unknown]
  - Psoriatic arthropathy [Recovering/Resolving]
  - Iris adhesions [Unknown]
  - Necrotising scleritis [Unknown]
  - Ocular fistula [Unknown]
  - Renal cyst [Unknown]
  - Cataract subcapsular [Unknown]
  - Visual impairment [Unknown]

NARRATIVE: CASE EVENT DATE: 20180901
